FAERS Safety Report 4941522-4 (Version None)
Quarter: 2006Q1

REPORT INFORMATION
  Report Type: 
  Country: None (occurrence: None)
  Receive Date: 20060313
  Receipt Date: 20060228
  Transmission Date: 20060701
  Serious: Yes (Hospitalization)
  Sender: FDA-Public Use
  Company Number: PHRM2006FR00943

PATIENT
  Age: 30 Year
  Sex: Male
  Weight: 67 kg

DRUGS (6)
  1. TEGRETOL [Suspect]
     Dosage: 600 MG/DAY
     Route: 048
     Dates: end: 20050818
  2. LEVOTHYROX [Concomitant]
     Route: 048
  3. DAFALGAN [Concomitant]
     Route: 048
  4. OSTRAM [Concomitant]
     Route: 048
  5. LOVENOX [Concomitant]
  6. DEPAKENE [Concomitant]
     Dosage: 1500 MG/DAY
     Route: 048

REACTIONS (18)
  - ANTINUCLEAR ANTIBODY POSITIVE [None]
  - BLOOD FIBRINOGEN INCREASED [None]
  - C-REACTIVE PROTEIN INCREASED [None]
  - COMPUTERISED TOMOGRAM THORAX ABNORMAL [None]
  - GENERAL PHYSICAL HEALTH DETERIORATION [None]
  - GRANULOMA [None]
  - HEPATOMEGALY [None]
  - INFLAMMATION [None]
  - LEUKOPENIA [None]
  - LYMPHADENITIS [None]
  - LYMPHADENOPATHY [None]
  - LYMPHOPENIA [None]
  - PLEURAL EFFUSION [None]
  - PYREXIA [None]
  - RED BLOOD CELL SEDIMENTATION RATE INCREASED [None]
  - SPLENOMEGALY [None]
  - TINEA VERSICOLOUR [None]
  - VOMITING [None]
